FAERS Safety Report 15769684 (Version 1)
Quarter: 2018Q4

REPORT INFORMATION
  Report Type: Spontaneous
  Country: US (occurrence: US)
  Receive Date: 20181218
  Receipt Date: 20181218
  Transmission Date: 20190205
  Serious: No
  Sender: FDA-Public Use
  Company Number: None

PATIENT

DRUGS (1)
  1. VANCOMYCIN HCL VANCOMYCIN [Suspect]
     Active Substance: VANCOMYCIN HYDROCHLORIDE

REACTIONS (3)
  - Blood creatinine increased [None]
  - Glomerular filtration rate decreased [None]
  - Incorrect dose administered [None]

NARRATIVE: CASE EVENT DATE: 2017
